FAERS Safety Report 5924370-8 (Version None)
Quarter: 2008Q4

REPORT INFORMATION
  Report Type: 
  Country: None (occurrence: None)
  Receive Date: 20081015
  Receipt Date: 20080916
  Transmission Date: 20090506
  Serious: Yes (Life-Threatening, Hospitalization)
  Sender: FDA-Public Use
  Company Number: 99931

PATIENT
  Age: 50 Year
  Sex: Male

DRUGS (5)
  1. IBUPROFEN [Suspect]
     Indication: HEADACHE
     Dosage: 400 MG/ TID/ ORAL
     Route: 048
     Dates: start: 20060901, end: 20080909
  2. AMLODIOPINE/ [Concomitant]
  3. BENDROFLUEMTHIAZIDE/ [Concomitant]
  4. ACETAMINOPHEN [Concomitant]
  5. PHENYTOIN [Concomitant]

REACTIONS (3)
  - DUODENAL ULCER [None]
  - HAEMOGLOBIN DECREASED [None]
  - MELAENA [None]
